FAERS Safety Report 5634782-8 (Version None)
Quarter: 2008Q1

REPORT INFORMATION
  Report Type: 
  Country: None (occurrence: None)
  Receive Date: 20080221
  Receipt Date: 20080221
  Transmission Date: 20080703
  Serious: No
  Sender: FDA-Public Use
  Company Number: None

PATIENT
  Sex: Female
  Weight: 81.6475 kg

DRUGS (1)
  1. ZICAM [Suspect]
     Indication: NASOPHARYNGITIS
     Dosage: ONCE
     Dates: start: 20050101, end: 20050101

REACTIONS (4)
  - ANOSMIA [None]
  - DYSGEUSIA [None]
  - LACRIMATION INCREASED [None]
  - NASAL DISCOMFORT [None]
